FAERS Safety Report 20621855 (Version 1)
Quarter: 2022Q1

REPORT INFORMATION
  Report Type: Report from Study
  Country: CA (occurrence: CA)
  Receive Date: 20220322
  Receipt Date: 20220322
  Transmission Date: 20220423
  Serious: Yes (Death)
  Sender: FDA-Public Use
  Company Number: CA-NOVARTISPH-NVSC2020CA337192

PATIENT

DRUGS (1)
  1. ASCIMINIB [Suspect]
     Active Substance: ASCIMINIB
     Indication: Chronic myeloid leukaemia
     Dosage: 40 MG, BID
     Route: 065
     Dates: end: 20211018

REACTIONS (3)
  - Pneumonia [Fatal]
  - Asthenia [Unknown]
  - Treatment failure [Unknown]
